FAERS Safety Report 10185494 (Version 1)
Quarter: 2014Q2

REPORT INFORMATION
  Report Type: Spontaneous
  Country: US (occurrence: US)
  Receive Date: 20140521
  Receipt Date: 20140521
  Transmission Date: 20141212
  Serious: Yes (Life-Threatening, Hospitalization)
  Sender: FDA-Public Use
  Company Number: PHEH2014US010299

PATIENT
  Sex: Male

DRUGS (2)
  1. AFINITOR [Suspect]
  2. SUTENT [Concomitant]
     Dosage: 50 MG, UNK

REACTIONS (1)
  - White blood cell count decreased [Unknown]
